FAERS Safety Report 8992722 (Version 3)
Quarter: 2013Q1

REPORT INFORMATION
  Report Type: Spontaneous
  Country: BR (occurrence: BR)
  Receive Date: 20130101
  Receipt Date: 20130326
  Transmission Date: 20140127
  Serious: Yes (Other)
  Sender: FDA-Public Use
  Company Number: BR-ROCHE-1176160

PATIENT
  Sex: Female
  Weight: 74 kg

DRUGS (5)
  1. XOLAIR [Suspect]
     Indication: ASTHMA
     Route: 042
     Dates: start: 20090201
  2. SINGULAIR [Concomitant]
     Indication: ASTHMA
     Route: 048
  3. SERETIDE [Concomitant]
     Indication: ASTHMA
     Dosage: 1 DF OR 2 DF DAILY
     Route: 065
  4. FORASEQ [Concomitant]
     Indication: ASTHMA
     Dosage: 1 OR 2 DF
     Route: 065
  5. PRISTIQ [Concomitant]

REACTIONS (4)
  - Depression [Recovering/Resolving]
  - Influenza [Recovering/Resolving]
  - Infection [Recovering/Resolving]
  - Incorrect route of drug administration [Unknown]
